FAERS Safety Report 24141807 (Version 1)
Quarter: 2024Q3

REPORT INFORMATION
  Report Type: Other
  Country: US (occurrence: US)
  Receive Date: 20240726
  Receipt Date: 20240726
  Transmission Date: 20241016
  Serious: Yes (Hospitalization, Other)
  Sender: APPCO PHARMA
  Company Number: US-Appco Pharma LLC-2159651

PATIENT
  Age: 27 Year
  Sex: Female

DRUGS (3)
  1. CLINDAMYCIN PALMITATE HYDROCHLORIDE [Suspect]
     Active Substance: CLINDAMYCIN PALMITATE HYDROCHLORIDE
     Indication: Fusobacterium infection
     Route: 065
  2. MEROPENEM [Suspect]
     Active Substance: MEROPENEM
     Route: 065
  3. METRONIDAZOLE [Suspect]
     Active Substance: METRONIDAZOLE
     Route: 065

REACTIONS (1)
  - Drug ineffective [Unknown]
